FAERS Safety Report 6367858-0 (Version None)
Quarter: 2009Q3

REPORT INFORMATION
  Report Type: 
  Country: None (occurrence: None)
  Receive Date: 20090921
  Receipt Date: 20090916
  Transmission Date: 20100115
  Serious: Yes (Other)
  Sender: FDA-Public Use
  Company Number: US-MERCK-0808USA04803

PATIENT
  Sex: Male

DRUGS (3)
  1. SINGULAIR [Suspect]
     Route: 048
     Dates: start: 20060101, end: 20071101
  2. SINGULAIR [Suspect]
     Route: 048
     Dates: start: 20080801, end: 20080101
  3. COUMADIN [Concomitant]
     Route: 065

REACTIONS (7)
  - COUGH [None]
  - DEPRESSION [None]
  - DYSPNOEA [None]
  - GASTROOESOPHAGEAL REFLUX DISEASE [None]
  - MALAISE [None]
  - SUICIDAL IDEATION [None]
  - WEIGHT DECREASED [None]
